FAERS Safety Report 10927910 (Version 1)
Quarter: 2015Q1

REPORT INFORMATION
  Report Type: Spontaneous
  Country: CA (occurrence: CA)
  Receive Date: 20150319
  Receipt Date: 20150319
  Transmission Date: 20150721
  Serious: Yes (Other)
  Sender: FDA-Public Use
  Company Number: CA-ACCORD-029350

PATIENT
  Age: 2 Year
  Sex: Male

DRUGS (2)
  1. TOPOTECAN/TOPOTECAN HYDROCHLORIDE [Suspect]
     Active Substance: TOPOTECAN\TOPOTECAN HYDROCHLORIDE
     Indication: RETINOBLASTOMA
     Dosage: SUB-TENON^S TOPOTECAN IN TISSEEL?TOPOTECAN POWDER DISSOLVED IN THROMBIN SOLUTION
  2. APROTININ [Suspect]
     Active Substance: APROTININ
     Indication: RETINOBLASTOMA

REACTIONS (6)
  - Off label use [Unknown]
  - Periorbital oedema [Recovered/Resolved]
  - Pruritus [Recovered/Resolved]
  - Injection site erythema [Recovered/Resolved]
  - Lacrimation increased [Recovered/Resolved]
  - Hypersensitivity [Unknown]
